FAERS Safety Report 8241729 (Version 11)
Quarter: 2014Q2

REPORT INFORMATION
  Report Type: Report from Study
  Country: FR (occurrence: FR)
  Receive Date: 20111111
  Receipt Date: 20140626
  Transmission Date: 20141212
  Serious: Yes (Death, Hospitalization, Other)
  Sender: FDA-Public Use
  Company Number: FR-EISAI INC-E7389-01708-CLI-FR

PATIENT
  Age: 41 Year
  Sex: Female
  Weight: 52 kg

DRUGS (7)
  1. ERIBULIN [Suspect]
     Indication: BREAST CANCER
     Route: 041
     Dates: start: 20110928, end: 20111108
  2. SODIUM [Concomitant]
  3. NEUPOGEN [Concomitant]
     Indication: NEUTROPENIA
     Route: 041
     Dates: start: 20111102, end: 20111118
  4. SALINE SOLUTION [Concomitant]
     Indication: DEHYDRATION
     Route: 041
     Dates: start: 20111102
  5. FLUCONAZOLE [Concomitant]
     Indication: MUCOSAL INFLAMMATION
     Route: 041
     Dates: start: 20111102
  6. AMOXICILLIN [Concomitant]
     Indication: NEUTROPENIA
     Dates: start: 20111102
  7. CLAVULANATE [Concomitant]
     Indication: NEUTROPENIA
     Dates: start: 20111102

REACTIONS (11)
  - Dehydration [Recovered/Resolved with Sequelae]
  - Decreased appetite [Recovered/Resolved with Sequelae]
  - Mucosal inflammation [Recovered/Resolved with Sequelae]
  - Anaemia [Recovered/Resolved]
  - Thrombocytopenia [Recovered/Resolved]
  - Hepatic encephalopathy [Fatal]
  - Hepatic failure [Fatal]
  - Jaundice [Not Recovered/Not Resolved]
  - Cell death [Not Recovered/Not Resolved]
  - Cholestasis [Not Recovered/Not Resolved]
  - Ascites [Not Recovered/Not Resolved]
